FAERS Safety Report 25766096 (Version 1)
Quarter: 2025Q3

REPORT INFORMATION
  Report Type: Spontaneous
  Country: US (occurrence: US)
  Receive Date: 20250905
  Receipt Date: 20250905
  Transmission Date: 20251021
  Serious: No
  Sender: DOMPE FARMACEUTICI
  Company Number: US-FARMAPROD-202408-2792

PATIENT
  Sex: Female
  Weight: 58.97 kg

DRUGS (19)
  1. OXERVATE [Suspect]
     Active Substance: CENEGERMIN-BKBJ
     Indication: Neurotrophic keratopathy
     Route: 047
     Dates: start: 20240723, end: 20240917
  2. OXERVATE [Suspect]
     Active Substance: CENEGERMIN-BKBJ
     Indication: Neurotrophic keratopathy
  3. OXERVATE [Suspect]
     Active Substance: CENEGERMIN-BKBJ
     Route: 047
     Dates: start: 20241212
  4. MAGNESIUM [Concomitant]
     Active Substance: MAGNESIUM
  5. FISH OIL-VIT D3 [Concomitant]
  6. METROCREAM [Concomitant]
     Active Substance: METRONIDAZOLE
  7. TRIAMCINOLONE ACETONIDE [Concomitant]
     Active Substance: TRIAMCINOLONE ACETONIDE
  8. ROSUVASTATIN CALCIUM [Concomitant]
     Active Substance: ROSUVASTATIN CALCIUM
  9. IVIZIA [Concomitant]
     Active Substance: POVIDONE
  10. REFRESH OPTIVE [Concomitant]
     Active Substance: CARBOXYMETHYLCELLULOSE SODIUM\GLYCERIN
  11. ESOMEPRAZOLE MAGNESIUM [Concomitant]
     Active Substance: ESOMEPRAZOLE MAGNESIUM
  12. CALCIUM\CHOLECALCIFEROL [Concomitant]
     Active Substance: CALCIUM\CHOLECALCIFEROL
  13. CLOBETASOL [Concomitant]
     Active Substance: CLOBETASOL
  14. REMICADE [Concomitant]
     Active Substance: INFLIXIMAB
  15. PROLIA [Concomitant]
     Active Substance: DENOSUMAB
  16. LUMIFY [Concomitant]
     Active Substance: BRIMONIDINE TARTRATE
  17. MIEBO [Concomitant]
     Active Substance: PERFLUOROHEXYLOCTANE
  18. CEQUA [Concomitant]
     Active Substance: CYCLOSPORINE
  19. PREMARIN [Concomitant]
     Active Substance: ESTROGENS, CONJUGATED

REACTIONS (5)
  - Eye irritation [Unknown]
  - Swelling of eyelid [Unknown]
  - Eyelid pain [Unknown]
  - Erythema of eyelid [Unknown]
  - Treatment delayed [Unknown]
